FAERS Safety Report 8634264 (Version 2)
Quarter: 2012Q4

REPORT INFORMATION
  Report Type: 
  Country: JP (occurrence: JP)
  Receive Date: 20120626
  Receipt Date: 20120904
  Transmission Date: 20130627
  Serious: Yes (Death, Hospitalization, Other)
  Sender: FDA-Public Use
  Company Number: JP-JNJFOC-20120610855

PATIENT
  Age: 88 Year
  Sex: Female
  Weight: 32 kg

DRUGS (7)
  1. RISPERDAL [Suspect]
     Indication: PERSECUTORY DELUSION
     Route: 048
     Dates: start: 20100811, end: 20100831
  2. VEGETCHLORPROMAZINE HYDROCHLORIDE\PHENOBARBITAL\PROMETHAZINEAMIN-B [Suspect]
     Indication: INSOMNIA
     Route: 048
     Dates: start: 20100811, end: 20100924
  3. ZOLPIDEM TARTRATE [Suspect]
     Indication: INSOMNIA
     Route: 048
     Dates: start: 20100811, end: 20110329
  4. BENZALIN [Suspect]
     Indication: INSOMNIA
     Route: 048
     Dates: start: 20100811, end: 20110329
  5. NORVASC [Concomitant]
     Indication: HYPERTENSION
     Route: 048
     Dates: start: 20100811, end: 20110329
  6. THYRADIN S [Concomitant]
     Indication: HYPOTHYROIDISM
     Route: 048
     Dates: start: 20100811, end: 20110514
  7. PRIMPERAN [Concomitant]
     Indication: NAUSEA
     Route: 048
     Dates: start: 20100811, end: 20110514

REACTIONS (7)
  - Pneumonia aspiration [Fatal]
  - Fall [Unknown]
  - Cognitive disorder [Unknown]
  - Femoral neck fracture [Unknown]
  - Inflammation [Unknown]
  - Somnolence [Unknown]
  - Gait disturbance [Unknown]
